FAERS Safety Report 5322122-3 (Version None)
Quarter: 2007Q2

REPORT INFORMATION
  Report Type: 
  Country: None (occurrence: None)
  Receive Date: 20070222
  Receipt Date: 20060310
  Transmission Date: 20071010
  Serious: Yes (Other)
  Sender: FDA-Public Use
  Company Number: HQWYE993724FEB06

PATIENT
  Age: 20 Year
  Sex: Female

DRUGS (3)
  1. EFFEXOR [Suspect]
     Indication: ATTENTION DEFICIT/HYPERACTIVITY DISORDER
     Dosage: 112.5 MG 1X PER 1 DAY; ORAL
     Route: 048
  2. UNISOM [Suspect]
     Dosage: INGESTED 10 SLEEPGELS (OVERDOSE AMOUNT); ORAL
     Route: 048
     Dates: start: 20060209, end: 20060209
  3. UNISOM [Suspect]
     Dosage: INGESTED 10 SLEEPGELS (OVERDOSE AMOUNT); ORAL
     Route: 048
     Dates: start: 20060210, end: 20060210

REACTIONS (1)
  - SUICIDE ATTEMPT [None]
